FAERS Safety Report 17255902 (Version 2)
Quarter: 2020Q1

REPORT INFORMATION
  Report Type: Report from Study
  Country: None (occurrence: US)
  Receive Date: 20200110
  Receipt Date: 20200124
  Transmission Date: 20200409
  Serious: Yes (Death)
  Sender: FDA-Public Use
  Company Number: US-ABBVIE-20P-163-3226473-00

PATIENT
  Age: 76 Year
  Sex: Female

DRUGS (2)
  1. IMBRUVICA [Suspect]
     Active Substance: IBRUTINIB
     Indication: LYMPHOCYTIC LEUKAEMIA
     Route: 048
     Dates: start: 20181006, end: 20191208
  2. VENCLEXTA [Suspect]
     Active Substance: VENETOCLAX
     Indication: LYMPHOCYTIC LEUKAEMIA
     Route: 048
     Dates: start: 20191209

REACTIONS (1)
  - Death [Fatal]

NARRATIVE: CASE EVENT DATE: 20200102
